FAERS Safety Report 19818740 (Version 1)
Quarter: 2021Q3

REPORT INFORMATION
  Report Type: Spontaneous
  Country: CA (occurrence: CA)
  Receive Date: 20210912
  Receipt Date: 20210912
  Transmission Date: 20211014
  Serious: Yes (Other)
  Sender: FDA-Public Use
  Company Number: CA-TEVA-2021-CA-1950939

PATIENT
  Age: 68 Year
  Sex: Female

DRUGS (4)
  1. DIPHENHYDRAMINE. [Concomitant]
     Active Substance: DIPHENHYDRAMINE
  2. CARBOPLATIN INJECTION LIQ IV 10MG/ML [Suspect]
     Active Substance: CARBOPLATIN
     Route: 065
  3. DEXAMETHASONE. [Concomitant]
     Active Substance: DEXAMETHASONE
     Route: 065
  4. ONDANSETRON [Concomitant]
     Active Substance: ONDANSETRON

REACTIONS (5)
  - Flushing [Unknown]
  - Nausea [Unknown]
  - Hypotension [Unknown]
  - Dizziness [Unknown]
  - Unresponsive to stimuli [Unknown]
